FAERS Safety Report 4543867-9 (Version None)
Quarter: 2005Q1

REPORT INFORMATION
  Report Type: 
  Country: None (occurrence: None)
  Receive Date: 20050103
  Receipt Date: 20031201
  Transmission Date: 20050727
  Serious: Yes (Hospitalization, Other)
  Sender: FDA-Public Use
  Company Number: PHFR2003GB04442

PATIENT
  Age: 24 Year
  Sex: Male

DRUGS (4)
  1. CLOZARIL [Suspect]
     Indication: SCHIZOPHRENIA
     Dosage: SEE IMAGE, ORAL
     Route: 048
     Dates: start: 20031113
  2. DIAZEPAM [Suspect]
     Dosage: SEE IMAGE
  3. CITALOPRAM (NGX) (CITALOPRAM) [Suspect]
     Dosage: SEE IMAGE
  4. PROCYCLIDINE HYDROCHLORIDE 2MG TAB [Suspect]
     Dosage: SEE IMAGE

REACTIONS (3)
  - ELECTROCARDIOGRAM QT CORRECTED INTERVAL PROLONGED [None]
  - MULTIPLE DRUG OVERDOSE [None]
  - SOMNOLENCE [None]
